FAERS Safety Report 21984608 (Version 1)
Quarter: 2023Q1

REPORT INFORMATION
  Report Type: Spontaneous
  Country: US (occurrence: US)
  Receive Date: 20230213
  Receipt Date: 20230213
  Transmission Date: 20230418
  Serious: Yes (Other)
  Sender: FDA-Public Use
  Company Number: US-AMGEN-USASP2023020800

PATIENT
  Weight: 2.9 kg

DRUGS (1)
  1. INFLIXIMAB [Suspect]
     Active Substance: INFLIXIMAB
     Indication: Exposure during pregnancy
     Dosage: UNK
     Route: 064

REACTIONS (5)
  - Cleft palate [Unknown]
  - Ankyloglossia congenital [Unknown]
  - Laryngomalacia [Unknown]
  - Micrognathia [Unknown]
  - Foetal exposure during pregnancy [Unknown]
